FAERS Safety Report 9746129 (Version 1)
Quarter: 2013Q4

REPORT INFORMATION
  Report Type: Spontaneous
  Country: US (occurrence: US)
  Receive Date: 20131211
  Receipt Date: 20131211
  Transmission Date: 20140711
  Serious: No
  Sender: FDA-Public Use
  Company Number: US-GILEAD-2009-0025580

PATIENT
  Age: 31 Year
  Sex: Male

DRUGS (2)
  1. ATRIPLA [Suspect]
     Indication: HIV INFECTION
  2. ADDERALL [Concomitant]

REACTIONS (4)
  - Drug interaction [Unknown]
  - Somnolence [Unknown]
  - Insomnia [Unknown]
  - Abnormal dreams [Unknown]
